FAERS Safety Report 5967956-7 (Version None)
Quarter: 2008Q4

REPORT INFORMATION
  Report Type: 
  Country: None (occurrence: None)
  Receive Date: 20081120
  Receipt Date: 20081111
  Transmission Date: 20090506
  Serious: No
  Sender: FDA-Public Use
  Company Number: 2008-186565-NL

PATIENT
  Age: 12 Month
  Sex: Male

DRUGS (1)
  1. CHORIONIC GONADTROPIN [Suspect]
     Indication: CRYPTORCHISM
     Dosage: 750 IU TW,  INTRAMUSCULAR
     Route: 030

REACTIONS (4)
  - ATRIAL SEPTAL DEFECT [None]
  - CEREBRAL CYST [None]
  - ENCEPHALOMALACIA [None]
  - ISCHAEMIC CEREBRAL INFARCTION [None]
